FAERS Safety Report 8373553-9 (Version None)
Quarter: 2012Q2

REPORT INFORMATION
  Report Type: 
  Country: None (occurrence: None)
  Receive Date: 20120521
  Receipt Date: 20120517
  Transmission Date: 20120825
  Serious: Yes (Other)
  Sender: FDA-Public Use
  Company Number: AU-PFIZER INC-2012106232

PATIENT
  Age: 61 Year
  Sex: Male

DRUGS (3)
  1. ATORVASTATIN CALCIUM [Suspect]
     Indication: HYPERLIPIDAEMIA
     Dosage: 80 MG, 1X/DAY
     Route: 048
  2. ANAMORPH [Concomitant]
     Dosage: 30 MG, 1X/DAY
     Route: 048
  3. ATACAND [Concomitant]
     Dosage: 16 MG, 1X/DAY
     Route: 048

REACTIONS (2)
  - PARAESTHESIA [None]
  - NAUSEA [None]
